FAERS Safety Report 23453177 (Version 3)
Quarter: 2024Q2

REPORT INFORMATION
  Report Type: Report from Study
  Country: NL (occurrence: NL)
  Receive Date: 20240129
  Receipt Date: 20240402
  Transmission Date: 20240716
  Serious: Yes (Other)
  Sender: FDA-Public Use
  Company Number: NL-DECIPHERA PHARMACEUTICALS LLC-2023NL000815

PATIENT
  Sex: Male
  Weight: 67 kg

DRUGS (7)
  1. RIPRETINIB [Suspect]
     Active Substance: RIPRETINIB
     Indication: Gastrointestinal stromal tumour
     Dosage: 150 MILLIGRAM, QD
     Route: 048
     Dates: start: 20210913, end: 20211206
  2. RIPRETINIB [Suspect]
     Active Substance: RIPRETINIB
     Dosage: 150 MILLIGRAM, BID
     Route: 048
     Dates: start: 20211207
  3. RIPRETINIB [Suspect]
     Active Substance: RIPRETINIB
     Dosage: UNK
     Dates: start: 20211011, end: 20231218
  4. SALICYLIC ACID [Concomitant]
     Active Substance: SALICYLIC ACID
     Indication: Product used for unknown indication
  5. CLINDAMYCIN [Concomitant]
     Active Substance: CLINDAMYCIN
     Indication: Product used for unknown indication
     Dosage: 300 MILLIGRAM, TID
     Route: 048
     Dates: start: 20200709, end: 20231221
  6. CARBASPIRIN CALCIUM [Concomitant]
     Active Substance: CARBASPIRIN CALCIUM
     Indication: Product used for unknown indication
     Dosage: UNK, QD
     Route: 048
     Dates: start: 20200709, end: 20231221
  7. SODIUM CHLORIDE [Concomitant]
     Active Substance: SODIUM CHLORIDE
     Indication: Product used for unknown indication
     Dosage: 500 MILLILITRE

REACTIONS (25)
  - Peripheral sensorimotor neuropathy [Recovered/Resolved]
  - B-cell lymphoma [Not Recovered/Not Resolved]
  - Squamous cell carcinoma of skin [Recovered/Resolved]
  - Impaired healing [Recovered/Resolved]
  - Dizziness [Unknown]
  - Glomerular filtration rate decreased [Unknown]
  - Gamma-glutamyltransferase increased [Unknown]
  - N-terminal prohormone brain natriuretic peptide increased [Unknown]
  - Blood albumin decreased [Unknown]
  - Haemoglobin decreased [Unknown]
  - White blood cell count increased [Unknown]
  - Neutrophil count increased [Unknown]
  - Blood thyroid stimulating hormone increased [Recovered/Resolved]
  - Thyroxine free decreased [Unknown]
  - Vitamin B1 increased [Unknown]
  - Dry mouth [Not Recovered/Not Resolved]
  - Lacrimation increased [Unknown]
  - Vision blurred [Unknown]
  - Blood calcium decreased [Recovered/Resolved]
  - Keratoacanthoma [Recovered/Resolved]
  - Fatigue [Unknown]
  - Weight decreased [Recovered/Resolved]
  - Oedema peripheral [Unknown]
  - Constipation [Unknown]
  - Extra dose administered [Unknown]

NARRATIVE: CASE EVENT DATE: 20211207
